FAERS Safety Report 9295351 (Version 1)
Quarter: 2013Q2

REPORT INFORMATION
  Report Type: Spontaneous
  Country: FR (occurrence: FR)
  Receive Date: 20130517
  Receipt Date: 20130517
  Transmission Date: 20140414
  Serious: Yes (Hospitalization)
  Sender: FDA-Public Use
  Company Number: FR-JNJFOC-20130505898

PATIENT
  Age: 84 Year
  Sex: Male

DRUGS (7)
  1. HALDOL [Suspect]
     Indication: PRODUCT USED FOR UNKNOWN INDICATION
     Route: 048
  2. HALDOL [Suspect]
     Indication: PRODUCT USED FOR UNKNOWN INDICATION
     Route: 048
  3. STILNOX [Concomitant]
     Route: 065
  4. FUROSEMIDE [Concomitant]
     Route: 065
  5. COZAAR [Concomitant]
     Route: 065
  6. DESLORATADINE [Concomitant]
     Route: 065
  7. SIMVASTATIN [Concomitant]
     Route: 065

REACTIONS (3)
  - Sleep disorder [Not Recovered/Not Resolved]
  - Disorientation [Not Recovered/Not Resolved]
  - Abnormal behaviour [Not Recovered/Not Resolved]
